FAERS Safety Report 5331089-3 (Version None)
Quarter: 2007Q2

REPORT INFORMATION
  Report Type: 
  Country: None (occurrence: None)
  Receive Date: 20070522
  Receipt Date: 20070515
  Transmission Date: 20071010
  Serious: Yes (Other)
  Sender: FDA-Public Use
  Company Number: US-BRISTOL-MYERS SQUIBB COMPANY-13784798

PATIENT
  Age: 60 Year
  Sex: Female

DRUGS (6)
  1. TEQUIN [Suspect]
     Indication: RESPIRATORY TRACT INFECTION
     Dates: start: 20060123, end: 20060201
  2. METRONIDAZOLE [Concomitant]
     Route: 048
     Dates: start: 20051024
  3. PREDNISONE TAB [Concomitant]
     Route: 048
     Dates: start: 20061129
  4. AMBIEN [Concomitant]
     Route: 048
     Dates: start: 20051129
  5. PROMETHAZINE [Concomitant]
     Route: 048
     Dates: start: 20051212
  6. VALTREX [Concomitant]
     Route: 048
     Dates: start: 20051212

REACTIONS (1)
  - HYPERGLYCAEMIA [None]
